FAERS Safety Report 6818970-0 (Version None)
Quarter: 2010Q3

REPORT INFORMATION
  Report Type: 
  Country: None (occurrence: None)
  Receive Date: 20100707
  Receipt Date: 20100625
  Transmission Date: 20110219
  Serious: Yes (Other)
  Sender: FDA-Public Use
  Company Number: JP-SHIRE-SPV1-2010-00769

PATIENT

DRUGS (7)
  1. FOSRENOL [Suspect]
     Indication: HYPERPHOSPHATAEMIA
     Dosage: UNK, UNK
     Route: 048
     Dates: start: 20091124, end: 20100210
  2. MAGMITT [Concomitant]
     Indication: CONSTIPATION
     Dosage: 990 MG, UNKNOWN
     Route: 048
  3. PURSENNID                          /00142207/ [Concomitant]
     Dosage: 24 MG, UNKNOWN
     Route: 048
  4. MEVALOTIN [Concomitant]
     Indication: HYPERLIPIDAEMIA
     Dosage: 10 MG, UNKNOWN
     Route: 048
  5. CALCIUM CARBONATE [Concomitant]
     Indication: HYPERPHOSPHATAEMIA
     Dosage: 3 G, UNK
     Route: 048
  6. ROCALTROL [Concomitant]
     Indication: HYPERPARATHYROIDISM
     Dosage: .25 UG, UNK
  7. KAYEXALATE [Concomitant]
     Indication: PRODUCT USED FOR UNKNOWN INDICATION
     Dosage: 10 G, UNKNOWN
     Route: 065

REACTIONS (2)
  - BILIARY CANCER METASTATIC [None]
  - HEPATIC FUNCTION ABNORMAL [None]
